FAERS Safety Report 8255039-5 (Version None)
Quarter: 2012Q1

REPORT INFORMATION
  Report Type: 
  Country: None (occurrence: None)
  Receive Date: 20120329
  Receipt Date: 20120316
  Transmission Date: 20120608
  Serious: Yes (Hospitalization, Other)
  Sender: FDA-Public Use
  Company Number: JPI-P-020417

PATIENT
  Age: 40 Year
  Sex: Female
  Weight: 83.9154 kg

DRUGS (4)
  1. AMPHETAMINE, DEXTROAMPHETAMINE MIXED SALTS [Concomitant]
  2. PROTRIPTYLINE HCL [Concomitant]
  3. XYREM [Suspect]
     Indication: CATAPLEXY
     Dosage: 6 GM (3 GM, 2 IN 1 D) ORAL
     Route: 048
     Dates: start: 20110217
  4. XYREM [Suspect]
     Indication: CATAPLEXY
     Dosage: 6 GM (3 GM, 2 IN 1 D) ORAL
     Route: 048
     Dates: end: 20120101

REACTIONS (13)
  - DRUG INEFFECTIVE [None]
  - ABASIA [None]
  - DENTAL CARIES [None]
  - MULTIPLE FRACTURES [None]
  - DYSGEUSIA [None]
  - CONFUSIONAL STATE [None]
  - MENTAL DISORDER [None]
  - WRIST FRACTURE [None]
  - IMPRISONMENT [None]
  - INSOMNIA [None]
  - LIGAMENT SPRAIN [None]
  - FALL [None]
  - BACK PAIN [None]
